FAERS Safety Report 7687968-5 (Version None)
Quarter: 2011Q3

REPORT INFORMATION
  Report Type: 
  Country: None (occurrence: None)
  Receive Date: 20110817
  Receipt Date: 20110810
  Transmission Date: 20111222
  Serious: Yes (Hospitalization)
  Sender: FDA-Public Use
  Company Number: NL-AMGEN-NLDCT2011040715

PATIENT

DRUGS (1)
  1. DENOSUMAB [Suspect]
     Indication: PROSTATE CANCER

REACTIONS (1)
  - PROSTATOMEGALY [None]
